FAERS Safety Report 14069545 (Version 5)
Quarter: 2017Q4

REPORT INFORMATION
  Report Type: Report from Study
  Country: JP (occurrence: JP)
  Receive Date: 20171010
  Receipt Date: 20171030
  Transmission Date: 20180321
  Serious: Yes (Hospitalization)
  Sender: FDA-Public Use
  Company Number: JP-009507513-1708JPN012965

PATIENT
  Age: 69 Year
  Sex: Male
  Weight: 55.9 kg

DRUGS (18)
  1. DOMPERIDONE [Concomitant]
     Active Substance: DOMPERIDONE
     Indication: NAUSEA
     Dosage: 10 MG, TID
     Route: 048
     Dates: start: 20170725, end: 20170821
  2. PLACEBO [Suspect]
     Active Substance: UNSPECIFIED INGREDIENT
     Dosage: UNK
     Route: 042
     Dates: start: 20170808, end: 20170808
  3. NAB-PACLITAXEL [Suspect]
     Active Substance: PACLITAXEL
     Dosage: 100 MG/M2, CYCLICAL ON D1, D8, D15 OF  Q3W
     Route: 042
     Dates: start: 20170808, end: 20170808
  4. DEXAMETHASONE SODIUM PHOSPHATE. [Suspect]
     Active Substance: DEXAMETHASONE SODIUM PHOSPHATE
     Indication: PREMEDICATION
     Dosage: 6.6 MG, ONCE
     Route: 042
     Dates: start: 20170713, end: 20170713
  5. NAB-PACLITAXEL [Suspect]
     Active Substance: PACLITAXEL
     Indication: NON-SMALL CELL LUNG CANCER METASTATIC
     Dosage: 100 MG/M2, CYCLICAL ON D1, D8, D15 OF Q3W
     Route: 042
     Dates: start: 20170705, end: 20170720
  6. DEXAMETHASONE. [Suspect]
     Active Substance: DEXAMETHASONE
     Indication: PREMEDICATION
     Dosage: 8 MG, QD
     Route: 048
     Dates: start: 20170809, end: 20170811
  7. DEXAMETHASONE SODIUM PHOSPHATE. [Suspect]
     Active Substance: DEXAMETHASONE SODIUM PHOSPHATE
     Dosage: 9.9 MG, ONCE
     Route: 042
     Dates: start: 20170808, end: 20170808
  8. DEXAMETHASONE SODIUM PHOSPHATE. [Suspect]
     Active Substance: DEXAMETHASONE SODIUM PHOSPHATE
     Dosage: 6.6 MG, ONCE
     Route: 042
     Dates: start: 20170720, end: 20170720
  9. ASPIRIN (+) CLOPIDOGREL BISULFATE [Concomitant]
     Dosage: 1 TABLET, QD (INDICATION REPORTED AS MH NO.3)
     Route: 048
     Dates: start: 20160330, end: 20170826
  10. FAMOTIDINE. [Concomitant]
     Active Substance: FAMOTIDINE
     Indication: GASTRITIS PROPHYLAXIS
     Dosage: 10 MG, QD
     Route: 048
     Dates: start: 20160330, end: 20170826
  11. CARBOPLATIN. [Suspect]
     Active Substance: CARBOPLATIN
     Indication: NON-SMALL CELL LUNG CANCER METASTATIC
     Dosage: AUC 6, Q3W
     Route: 042
     Dates: start: 20170705, end: 20170705
  12. DEXAMETHASONE. [Suspect]
     Active Substance: DEXAMETHASONE
     Dosage: UNK
  13. SENNOSIDES. [Concomitant]
     Active Substance: SENNOSIDES
     Indication: CONSTIPATION
     Dosage: 24 MG, PRN
     Route: 048
     Dates: start: 20170705, end: 20170826
  14. CARBOPLATIN. [Suspect]
     Active Substance: CARBOPLATIN
     Dosage: AUC 6, Q3W
     Route: 042
     Dates: start: 20170808, end: 20170808
  15. OLANZAPINE. [Concomitant]
     Active Substance: OLANZAPINE
     Indication: NAUSEA
     Dosage: 5 MG, QD
     Route: 048
     Dates: start: 20170815, end: 20170821
  16. DEXAMETHASONE SODIUM PHOSPHATE. [Suspect]
     Active Substance: DEXAMETHASONE SODIUM PHOSPHATE
     Indication: PREMEDICATION
     Dosage: 9.9 MG, ONCE
     Route: 042
     Dates: start: 20170705, end: 20170705
  17. PLACEBO [Suspect]
     Active Substance: UNSPECIFIED INGREDIENT
     Indication: NON-SMALL CELL LUNG CANCER METASTATIC
     Dosage: UNK
     Route: 042
     Dates: start: 20170705, end: 20170705
  18. BIFIDOBACTERIUM (UNSPECIFIED) [Concomitant]
     Indication: PROPHYLAXIS AGAINST DIARRHOEA
     Dosage: 1 TABLET, TID
     Route: 048
     Dates: start: 20170720, end: 20170821

REACTIONS (1)
  - Gastric ulcer haemorrhage [Recovered/Resolved]

NARRATIVE: CASE EVENT DATE: 20170827
